FAERS Safety Report 6662065-6 (Version None)
Quarter: 2010Q1

REPORT INFORMATION
  Report Type: 
  Country: None (occurrence: None)
  Receive Date: 20100331
  Receipt Date: 20100322
  Transmission Date: 20100710
  Serious: Yes (Hospitalization)
  Sender: FDA-Public Use
  Company Number: IT-PFIZER INC-2010015356

PATIENT
  Age: 68 Year
  Sex: Male

DRUGS (4)
  1. ARACYTIN [Suspect]
     Indication: ACUTE MYELOID LEUKAEMIA
     Dosage: 300 MG TOTAL
     Route: 042
     Dates: start: 20090628, end: 20090628
  2. ARACYTIN [Suspect]
     Dosage: 400 MG X DAY
     Route: 042
     Dates: start: 20090629, end: 20090630
  3. ZAVEDOS [Suspect]
     Indication: ACUTE MYELOID LEUKAEMIA
     Dosage: 24 MG X DAY
     Route: 042
     Dates: start: 20090702, end: 20090705
  4. DEXRAZOXANE HYDROCHLORIDE [Concomitant]
     Dosage: 1000 MG, UNK
     Route: 042
     Dates: start: 20090703, end: 20090705

REACTIONS (4)
  - APHONIA [None]
  - HYPERPYREXIA [None]
  - OROPHARYNGITIS FUNGAL [None]
  - PANCREATITIS ACUTE [None]
